FAERS Safety Report 8557445-8 (Version None)
Quarter: 2012Q3

REPORT INFORMATION
  Report Type: 
  Country: None (occurrence: None)
  Receive Date: 20120801
  Receipt Date: 20120725
  Transmission Date: 20120928
  Serious: Yes (Other)
  Sender: FDA-Public Use
  Company Number: BR-ELI_LILLY_AND_COMPANY-BR201207007977

PATIENT
  Sex: Male
  Weight: 62 kg

DRUGS (4)
  1. HUMULIN R [Suspect]
     Indication: TYPE 1 DIABETES MELLITUS
     Dosage: UNK, UNKNOWN
     Route: 058
  2. SIMVASTATIN [Concomitant]
     Dosage: UNK, UNKNOWN
     Route: 065
  3. HUMULIN N [Suspect]
     Dosage: 14 IU, EACH MORNING
     Route: 065
  4. HUMULIN N [Suspect]
     Dosage: 6 IU, EACH EVENING
     Route: 065

REACTIONS (3)
  - BLOOD GLUCOSE DECREASED [None]
  - MALAISE [None]
  - APPENDICECTOMY [None]
